FAERS Safety Report 4428991-3 (Version None)
Quarter: 2004Q3

REPORT INFORMATION
  Report Type: 
  Country: None (occurrence: None)
  Receive Date: 20040818
  Receipt Date: 20040810
  Transmission Date: 20050211
  Serious: Yes (Hospitalization, Other)
  Sender: FDA-Public Use
  Company Number: PHEH2004US08856

PATIENT
  Age: 35 Year
  Sex: Female

DRUGS (1)
  1. METHERGINE [Suspect]
     Indication: UTERINE CONTRACTIONS DURING PREGNANCY
     Dosage: .2 MG/ML, UNK
     Route: 042

REACTIONS (4)
  - CAESAREAN SECTION [None]
  - DRUG EXPOSURE DURING PREGNANCY [None]
  - MEDICATION ERROR [None]
  - NORMAL NEWBORN [None]
